FAERS Safety Report 8001300-9 (Version None)
Quarter: 2011Q4

REPORT INFORMATION
  Report Type: 
  Country: None (occurrence: None)
  Receive Date: 20111219
  Receipt Date: 20111202
  Transmission Date: 20120403
  Serious: Yes (Hospitalization)
  Sender: FDA-Public Use
  Company Number: US-1189388

PATIENT
  Age: 44 Year
  Sex: Male

DRUGS (1)
  1. PROPARACAINE HCL [Suspect]
     Indication: ANALGESIC THERAPY
     Dosage: (1 GTT 10X/DAY OPHTHALMIC)
     Route: 047

REACTIONS (6)
  - PUNCTATE KERATITIS [None]
  - SCAR [None]
  - CORNEAL EPITHELIUM DEFECT [None]
  - SLEEP DISORDER [None]
  - DRUG ABUSE [None]
  - ULCERATIVE KERATITIS [None]
